FAERS Safety Report 9963137 (Version 1)
Quarter: 2014Q1

REPORT INFORMATION
  Report Type: Report from Study
  Country: US (occurrence: US)
  Receive Date: 20140305
  Receipt Date: 20140305
  Transmission Date: 20141002
  Serious: No
  Sender: FDA-Public Use
  Company Number: US-ABBVIE-13P-163-1113901-00

PATIENT
  Age: 22 Year
  Sex: Female

DRUGS (4)
  1. HUMIRA [Suspect]
     Indication: CROHN^S DISEASE
     Dosage: LOADING DOSE 4 PENS OF 40MG = 160MG
     Dates: start: 20130531, end: 20130531
  2. HUMIRA [Suspect]
     Dosage: 2 PENS OF 40MG = 80MG
  3. MULTIVITAMIN [Concomitant]
     Indication: VITAMIN SUPPLEMENTATION
     Dosage: SUPPLEMENT
  4. MELATONIN [Concomitant]
     Indication: INSOMNIA
     Dosage: LATELY HAS BEEN ABOUT ONCE PER WEEK

REACTIONS (18)
  - Decreased appetite [Recovered/Resolved]
  - Nausea [Recovered/Resolved]
  - Chest pain [Recovered/Resolved]
  - Paraesthesia [Recovered/Resolved]
  - Paraesthesia [Recovered/Resolved]
  - Pain in extremity [Recovered/Resolved]
  - Pruritus generalised [Recovered/Resolved]
  - Skin burning sensation [Recovered/Resolved]
  - Cough [Recovered/Resolved]
  - Nausea [Recovering/Resolving]
  - Decreased appetite [Recovering/Resolving]
  - Chest pain [Recovering/Resolving]
  - Paraesthesia [Recovering/Resolving]
  - Paraesthesia [Recovering/Resolving]
  - Pain in extremity [Recovering/Resolving]
  - Pruritus generalised [Recovering/Resolving]
  - Skin burning sensation [Recovering/Resolving]
  - Dyspnoea [Recovering/Resolving]
